FAERS Safety Report 25790841 (Version 1)
Quarter: 2025Q3

REPORT INFORMATION
  Report Type: Spontaneous
  Country: IN (occurrence: IN)
  Receive Date: 20250911
  Receipt Date: 20250911
  Transmission Date: 20251020
  Serious: Yes (Other)
  Sender: Zenara Pharma Private
  Company Number: IN-Zenara-000001

PATIENT
  Age: 29 Year
  Sex: Female

DRUGS (2)
  1. PROPRANOLOL [Concomitant]
     Active Substance: PROPRANOLOL HYDROCHLORIDE
     Indication: Somatic symptom disorder
     Route: 065
  2. SERTRALINE [Suspect]
     Active Substance: SERTRALINE HYDROCHLORIDE
     Indication: Mood swings
     Route: 065

REACTIONS (3)
  - Borderline personality disorder [Recovered/Resolved]
  - Withdrawal syndrome [Recovered/Resolved]
  - Exposure during pregnancy [Unknown]
